FAERS Safety Report 7474443-6 (Version None)
Quarter: 2011Q2

REPORT INFORMATION
  Report Type: 
  Country: None (occurrence: None)
  Receive Date: 20110512
  Receipt Date: 20110217
  Transmission Date: 20111010
  Serious: No
  Sender: FDA-Public Use
  Company Number: US-BAYER-2011-016757

PATIENT
  Sex: Female

DRUGS (2)
  1. IRON [IRON] [Concomitant]
  2. AVELOX [Suspect]

REACTIONS (1)
  - NO ADVERSE EVENT [None]
